FAERS Safety Report 13265608 (Version 1)
Quarter: 2017Q1

REPORT INFORMATION
  Report Type: Spontaneous
  Country: US (occurrence: US)
  Receive Date: 20170223
  Receipt Date: 20170223
  Transmission Date: 20170428
  Serious: Yes (Other)
  Sender: FDA-Public Use
  Company Number: US-SAOL THERAPEUTICS-2017SAO00355

PATIENT
  Age: 71 Year
  Sex: Male

DRUGS (1)
  1. COMPOUNDED BACLOFEN [Suspect]
     Active Substance: BACLOFEN
     Dosage: 111 ?G, \DAY
     Route: 037

REACTIONS (1)
  - Implant site extravasation [Recovered/Resolved]

NARRATIVE: CASE EVENT DATE: 20170217
